FAERS Safety Report 19110650 (Version 1)
Quarter: 2021Q2

REPORT INFORMATION
  Report Type: Other
  Country: JP (occurrence: JP)
  Receive Date: 20210408
  Receipt Date: 20210408
  Transmission Date: 20210717
  Serious: Yes (Disabling, Other)
  Sender: FDA-Public Use
  Company Number: JP-VALIDUS PHARMACEUTICALS LLC-JP-2021VAL000147

PATIENT
  Age: 63 Year
  Sex: Female

DRUGS (1)
  1. LASIX [Suspect]
     Active Substance: FUROSEMIDE
     Indication: PRODUCT USED FOR UNKNOWN INDICATION
     Dosage: 20 UNK, UNK
     Route: 048
     Dates: start: 201006, end: 201007

REACTIONS (4)
  - Torsade de pointes [Unknown]
  - Ventricular fibrillation [Unknown]
  - Mental impairment [Unknown]
  - Hypoxic-ischaemic encephalopathy [Unknown]
